FAERS Safety Report 8694590 (Version 2)
Quarter: 2012Q4

REPORT INFORMATION
  Report Type: Report from Study
  Country: FR (occurrence: FR)
  Receive Date: 20120731
  Receipt Date: 20120914
  Transmission Date: 20130627
  Serious: Yes (Hospitalization)
  Sender: FDA-Public Use
  Company Number: FR-PFIZER INC-2012175666

PATIENT
  Age: 65 Year
  Sex: Male
  Weight: 79 kg

DRUGS (3)
  1. SUTENT [Suspect]
     Indication: METASTATIC RENAL CELL CARCINOMA
     Dosage: UNK
     Dates: start: 20120123
  2. SUTENT [Suspect]
     Dosage: Cycle 4
     Dates: start: 20120528, end: 20120624
  3. AREDIA [Concomitant]
     Dosage: 90 mg, UNK
     Dates: start: 20120305

REACTIONS (2)
  - Urinary retention [Recovered/Resolved]
  - Renal failure [Recovered/Resolved]
